FAERS Safety Report 20983250 (Version 1)
Quarter: 2022Q2

REPORT INFORMATION
  Report Type: Spontaneous
  Country: US (occurrence: US)
  Receive Date: 20220620
  Receipt Date: 20220620
  Transmission Date: 20220720
  Serious: Yes (Other)
  Sender: FDA-Public Use
  Company Number: US-ANIPHARMA-2022-US-014760

PATIENT
  Sex: Female

DRUGS (1)
  1. NEBIVOLOL HYDROCHLORIDE [Suspect]
     Active Substance: NEBIVOLOL HYDROCHLORIDE
     Indication: Blood pressure measurement
     Route: 065
     Dates: start: 202204

REACTIONS (8)
  - Product substitution issue [Unknown]
  - Drug ineffective [Unknown]
  - Fatigue [Unknown]
  - Vision blurred [Unknown]
  - Sinus congestion [Unknown]
  - Ear discomfort [Unknown]
  - Headache [Unknown]
  - Blood pressure increased [Unknown]
